FAERS Safety Report 4596526-0 (Version None)
Quarter: 2005Q1

REPORT INFORMATION
  Report Type: 
  Country: None (occurrence: None)
  Receive Date: 20050228
  Receipt Date: 20050128
  Transmission Date: 20050727
  Serious: No
  Sender: FDA-Public Use
  Company Number: 10110

PATIENT
  Age: 53 Year
  Sex: Male

DRUGS (8)
  1. METHOTREXATE [Suspect]
     Indication: RHEUMATOID ARTHRITIS
     Dosage: 15 MG WEEKLY, PO
     Route: 048
     Dates: start: 20020401, end: 20041201
  2. ETANERCEPT [Suspect]
     Indication: RHEUMATOID ARTHRITIS
     Dosage: 25 MG 2/WK SC
     Route: 058
     Dates: start: 20040403
  3. ANTIBIOTICS [Suspect]
     Indication: ACUTE SINUSITIS
     Dosage: PO
     Route: 048
     Dates: start: 20041201
  4. DICLOFENAC SODIUM [Concomitant]
  5. ALLOPURINOL [Concomitant]
  6. PANTOPRAZOLE [Concomitant]
  7. TAMSULOSIN HYDROCHLORIDE [Concomitant]
  8. ALENDRONATE SODIUM [Concomitant]

REACTIONS (5)
  - ACUTE SINUSITIS [None]
  - ALANINE AMINOTRANSFERASE INCREASED [None]
  - ASPARTATE AMINOTRANSFERASE INCREASED [None]
  - BLOOD ALKALINE PHOSPHATASE INCREASED [None]
  - GAMMA-GLUTAMYLTRANSFERASE INCREASED [None]
